FAERS Safety Report 7955761-1 (Version None)
Quarter: 2011Q4

REPORT INFORMATION
  Report Type: 
  Country: None (occurrence: None)
  Receive Date: 20111204
  Receipt Date: 20111126
  Transmission Date: 20120403
  Serious: Yes (Other)
  Sender: FDA-Public Use
  Company Number: US-CEPHALON-US014937

PATIENT
  Age: 27 Year
  Sex: Female

DRUGS (4)
  1. ACTIQ [Suspect]
     Route: 048
     Dates: start: 20030704, end: 20030704
  2. NEURONTIN [Suspect]
     Route: 048
     Dates: start: 20030704, end: 20030704
  3. AMBIEN [Suspect]
     Route: 048
     Dates: start: 20030704, end: 20030704
  4. LAMICTAL [Suspect]
     Route: 048
     Dates: start: 20030704, end: 20030704

REACTIONS (3)
  - SUICIDE ATTEMPT [None]
  - SOMNOLENCE [None]
  - INTENTIONAL OVERDOSE [None]
